FAERS Safety Report 8800632 (Version 1)
Quarter: 2012Q4

REPORT INFORMATION
  Report Type: 
  Country: US (occurrence: US)
  Receive Date: 20120921
  Receipt Date: 20120921
  Transmission Date: 20130627
  Serious: Yes (Hospitalization)
  Sender: FDA-Public Use
  Company Number: US-ELI_LILLY_AND_COMPANY-US201209003683

PATIENT
  Age: 76 None
  Sex: Male

DRUGS (4)
  1. HUMULIN NPH [Suspect]
     Indication: DIABETES MELLITUS
     Dosage: 46 u, each morning
     Dates: start: 20120909
  2. HUMULIN NPH [Suspect]
     Dosage: 34 u, each evening
     Dates: start: 20120909
  3. HUMULIN NPH [Suspect]
     Dosage: UNK
     Dates: end: 20120908
  4. NOVOLOG [Concomitant]

REACTIONS (3)
  - Hospitalisation [Recovered/Resolved]
  - Blood glucose increased [Recovering/Resolving]
  - Incorrect dose administered [Recovered/Resolved]
